FAERS Safety Report 8741871 (Version 3)
Quarter: 2012Q4

REPORT INFORMATION
  Report Type: 
  Country: US (occurrence: US)
  Receive Date: 20120824
  Receipt Date: 20120927
  Transmission Date: 20130627
  Serious: Yes (Other)
  Sender: FDA-Public Use
  Company Number: US-PFIZER INC-2012203846

PATIENT
  Age: 69 None
  Sex: Male
  Weight: 111 kg

DRUGS (1)
  1. VIAGRA [Suspect]
     Indication: SEXUAL DYSFUNCTION
     Dosage: 25 mg, as needed
     Route: 048
     Dates: end: 1999

REACTIONS (2)
  - Erection increased [Unknown]
  - Erectile dysfunction [Unknown]
